FAERS Safety Report 25192463 (Version 3)
Quarter: 2025Q2

REPORT INFORMATION
  Report Type: Report from Study
  Country: US (occurrence: US)
  Receive Date: 20250414
  Receipt Date: 20250430
  Transmission Date: 20250716
  Serious: No
  Sender: NOVARTIS
  Company Number: US-002147023-NVSC2025US060492

PATIENT
  Age: 45 Year
  Sex: Female

DRUGS (1)
  1. COSENTYX [Suspect]
     Active Substance: SECUKINUMAB
     Indication: Hidradenitis
     Route: 065
     Dates: start: 20250301

REACTIONS (5)
  - Incorrect dose administered by device [Unknown]
  - Device issue [Unknown]
  - Device leakage [Unknown]
  - Device malfunction [Recovered/Resolved]
  - Pain [Unknown]

NARRATIVE: CASE EVENT DATE: 20250401
